FAERS Safety Report 8374263-4 (Version None)
Quarter: 2012Q2

REPORT INFORMATION
  Report Type: 
  Country: None (occurrence: None)
  Receive Date: 20120521
  Receipt Date: 20120516
  Transmission Date: 20120825
  Serious: Yes (Other)
  Sender: FDA-Public Use
  Company Number: US-TEVA-338547USA

PATIENT

DRUGS (2)
  1. PROCHLORPERAZINE [Suspect]
  2. PHENOXYBENZAMINE [Interacting]

REACTIONS (3)
  - DRUG INTERACTION [None]
  - BLINDNESS [None]
  - VIITH NERVE PARALYSIS [None]
